FAERS Safety Report 24283017 (Version 1)
Quarter: 2024Q3

REPORT INFORMATION
  Report Type: Spontaneous
  Country: US (occurrence: None)
  Receive Date: 20240904
  Receipt Date: 20240904
  Transmission Date: 20241016
  Serious: Yes (Hospitalization, Disabling)
  Sender: Public
  Company Number: None

PATIENT
  Age: 29 Year
  Sex: Female
  Weight: 60.3 kg

DRUGS (1)
  1. HYRIMOZ [Suspect]
     Active Substance: ADALIMUMAB-ADAZ
     Indication: Ankylosing spondylitis
     Dosage: 1 INJECTION EVERY TWO WEEKS
     Dates: start: 20240502, end: 20240502

REACTIONS (11)
  - Muscle twitching [None]
  - Fatigue [None]
  - Depression [None]
  - Hypophagia [None]
  - Gait disturbance [None]
  - Muscular weakness [None]
  - Neuropathy peripheral [None]
  - Multiple sclerosis [None]
  - Guillain-Barre syndrome [None]
  - Paraesthesia [None]
  - Neuralgia [None]

NARRATIVE: CASE EVENT DATE: 20240510
